FAERS Safety Report 5239828-7 (Version None)
Quarter: 2007Q1

REPORT INFORMATION
  Report Type: 
  Country: None (occurrence: None)
  Receive Date: 20070214
  Receipt Date: 20070214
  Transmission Date: 20070707
  Serious: No
  Sender: FDA-Public Use
  Company Number: None

PATIENT
  Sex: Female
  Weight: 63.5036 kg

DRUGS (1)
  1. ADVAIR  50/100 [Suspect]
     Dosage: ONE INHALATION  TWICE A DAY PO
     Route: 048

REACTIONS (3)
  - CANDIDIASIS [None]
  - FUNGAL INFECTION [None]
  - TINEA PEDIS [None]
